FAERS Safety Report 4404611-9 (Version None)
Quarter: 2004Q3

REPORT INFORMATION
  Report Type: 
  Country: None (occurrence: None)
  Receive Date: 20040721
  Receipt Date: 20040721
  Transmission Date: 20050211
  Serious: Yes (Death)
  Sender: FDA-Public Use
  Company Number: None

PATIENT
  Age: 38 Year
  Sex: Female

DRUGS (4)
  1. DURAGESIC [Suspect]
     Indication: PAIN MANAGEMENT
     Dosage: Q 72 HR
     Dates: start: 20031121
  2. OXACILLIN [Concomitant]
  3. MORPHINE [Concomitant]
  4. FLUCONAZOLE [Concomitant]

REACTIONS (8)
  - ABNORMAL BEHAVIOUR [None]
  - ANOXIC ENCEPHALOPATHY [None]
  - CARDIAC ARREST [None]
  - COMA [None]
  - CYANOSIS [None]
  - EUPHORIC MOOD [None]
  - INTENTIONAL MISUSE [None]
  - MEDICATION ERROR [None]
